FAERS Safety Report 24710106 (Version 1)
Quarter: 2024Q4

REPORT INFORMATION
  Report Type: Spontaneous
  Country: US (occurrence: US)
  Receive Date: 20241209
  Receipt Date: 20241209
  Transmission Date: 20250115
  Serious: No
  Sender: BRISTOL-MYERS SQUIBB COMPANY
  Company Number: US-BRISTOL-MYERS SQUIBB COMPANY-2024-190938

PATIENT
  Age: 88 Year
  Sex: Male
  Weight: 81.1 kg

DRUGS (6)
  1. REVLIMID [Suspect]
     Active Substance: LENALIDOMIDE
     Indication: Bladder cancer
     Route: 048
     Dates: start: 20240925, end: 20241119
  2. REVLIMID [Suspect]
     Active Substance: LENALIDOMIDE
     Route: 048
  3. ONDANSETRON [Concomitant]
     Active Substance: ONDANSETRON
     Indication: Nausea
  4. PROMETHAZINE [Concomitant]
     Active Substance: PROMETHAZINE HYDROCHLORIDE
     Indication: Nausea
  5. LISINOPRIL [Concomitant]
     Active Substance: LISINOPRIL
     Indication: Nausea
  6. METOPROLOL [Concomitant]
     Active Substance: METOPROLOL
     Indication: Nausea

REACTIONS (5)
  - Rash [Recovered/Resolved]
  - Swelling [Recovered/Resolved]
  - Somnolence [Recovered/Resolved]
  - Fatigue [Recovered/Resolved]
  - Off label use [Unknown]

NARRATIVE: CASE EVENT DATE: 20241108
